FAERS Safety Report 20891751 (Version 2)
Quarter: 2022Q3

REPORT INFORMATION
  Report Type: Spontaneous
  Country: IN (occurrence: IN)
  Receive Date: 20220530
  Receipt Date: 20220725
  Transmission Date: 20221027
  Serious: Yes (Death, Other)
  Sender: FDA-Public Use
  Company Number: IN-ALLERGAN-2217520US

PATIENT
  Sex: Female

DRUGS (1)
  1. BOTOX [Suspect]
     Active Substance: ONABOTULINUMTOXINA
     Indication: Muscle spasticity
     Dosage: UNK UNK, SINGLE
     Dates: start: 20210910, end: 20210910

REACTIONS (6)
  - Death [Fatal]
  - Hyponatraemia [Unknown]
  - Seizure [Unknown]
  - Ocular hyperaemia [Recovered/Resolved]
  - Swelling face [Recovered/Resolved]
  - Drug ineffective [Unknown]
